FAERS Safety Report 5528448-2 (Version None)
Quarter: 2007Q4

REPORT INFORMATION
  Report Type: 
  Country: None (occurrence: None)
  Receive Date: 20071128
  Receipt Date: 20071121
  Transmission Date: 20080405
  Serious: Yes (Other)
  Sender: FDA-Public Use
  Company Number: IT-BOEHRINGER INGELHEIM PHARMACEUTICALS, INC.-2007-DE-06921GD

PATIENT
  Age: 49 Year
  Sex: Male

DRUGS (9)
  1. APTIVUS [Suspect]
     Indication: HIV INFECTION
     Dosage: TIPRANAVIR/RITONAVIR 1000/400 MG
  2. APTIVUS [Suspect]
     Indication: ACQUIRED IMMUNODEFICIENCY SYNDROME
  3. PHENOBARBITAL TAB [Suspect]
     Indication: EPILEPSY
  4. ABACAVIR [Concomitant]
     Indication: HIV INFECTION
  5. ABACAVIR [Concomitant]
     Indication: ACQUIRED IMMUNODEFICIENCY SYNDROME
  6. DIDANOSINE [Concomitant]
     Indication: HIV INFECTION
  7. DIDANOSINE [Concomitant]
     Indication: ACQUIRED IMMUNODEFICIENCY SYNDROME
  8. ENFUVIRTIDE [Concomitant]
     Indication: HIV INFECTION
  9. ENFUVIRTIDE [Concomitant]
     Indication: ACQUIRED IMMUNODEFICIENCY SYNDROME

REACTIONS (2)
  - CONVULSION [None]
  - DRUG INTERACTION [None]
